FAERS Safety Report 5633891-7 (Version None)
Quarter: 2008Q1

REPORT INFORMATION
  Report Type: 
  Country: None (occurrence: None)
  Receive Date: 20080221
  Receipt Date: 20080214
  Transmission Date: 20080703
  Serious: No
  Sender: FDA-Public Use
  Company Number: US-BOEHRINGER INGELHEIM GMBH, GERMANY-2008-BP-02317BP

PATIENT
  Sex: Male

DRUGS (12)
  1. FLOMAX [Suspect]
     Indication: BENIGN PROSTATIC HYPERPLASIA
     Route: 048
     Dates: start: 20080131
  2. CITALOPRAM HYDROBROMIDE [Concomitant]
  3. LEVODOPA [Concomitant]
  4. METFORMIN HCL [Concomitant]
  5. LISINOPRIL [Concomitant]
  6. AGGRENOX [Concomitant]
  7. COREG [Concomitant]
  8. ZOCOR [Concomitant]
  9. SIMVASTATIN [Concomitant]
  10. LASIX [Concomitant]
  11. PRILOSEC [Concomitant]
  12. REMERON [Concomitant]

REACTIONS (3)
  - DYSPNOEA [None]
  - NAUSEA [None]
  - POOR QUALITY SLEEP [None]
